FAERS Safety Report 21085382 (Version 2)
Quarter: 2022Q3

REPORT INFORMATION
  Report Type: Report from Study
  Country: TW (occurrence: TW)
  Receive Date: 20220714
  Receipt Date: 20220719
  Transmission Date: 20221027
  Serious: Yes (Death)
  Sender: FDA-Public Use
  Company Number: TW-ABBVIE-22K-153-4465994-00

PATIENT
  Age: 81 Year
  Sex: Male
  Weight: 50 kg

DRUGS (4)
  1. RINVOQ [Suspect]
     Active Substance: UPADACITINIB
     Indication: Rheumatoid arthritis
     Route: 048
     Dates: start: 20220328, end: 20220620
  2. CARVEDILOL [Concomitant]
     Active Substance: CARVEDILOL
     Indication: Cardiac disorder
     Route: 048
     Dates: start: 20180717
  3. FUROSEMIDE [Concomitant]
     Active Substance: FUROSEMIDE
     Indication: Cardiac disorder
     Route: 048
     Dates: start: 20180717
  4. CAPTOPRIL [Concomitant]
     Active Substance: CAPTOPRIL
     Indication: Cardiac disorder
     Route: 048
     Dates: start: 20180717

REACTIONS (6)
  - Discomfort [Fatal]
  - Vomiting [Fatal]
  - Myocardial infarction [Fatal]
  - Cardiac failure [Fatal]
  - Abdominal pain [Fatal]
  - Pyrexia [Fatal]

NARRATIVE: CASE EVENT DATE: 20220625
